FAERS Safety Report 9259579 (Version 2)
Quarter: 2013Q2

REPORT INFORMATION
  Report Type: Spontaneous
  Country: IT (occurrence: IT)
  Receive Date: 20130429
  Receipt Date: 20130508
  Transmission Date: 20140414
  Serious: Yes (Other)
  Sender: FDA-Public Use
  Company Number: IT-009507513-1304ITA013795

PATIENT
  Age: 79 Year
  Sex: Female

DRUGS (5)
  1. REMERON [Suspect]
     Indication: BIPOLAR I DISORDER
     Dosage: 30 MG, QD
     Route: 048
     Dates: start: 20130101
  2. TRITTICO [Suspect]
     Indication: DEPRESSION
     Dosage: 15 DROPS DAILY
     Route: 048
     Dates: start: 20130101
  3. EFEXOR [Suspect]
     Indication: BIPOLAR I DISORDER
     Dosage: 150 MG, QD
     Route: 048
     Dates: start: 20130101
  4. CARDIOASPIRIN [Concomitant]
     Dosage: UNK
     Route: 048
  5. XANAX [Concomitant]
     Route: 048

REACTIONS (1)
  - Petit mal epilepsy [Recovering/Resolving]
